FAERS Safety Report 5930943-9 (Version None)
Quarter: 2008Q4

REPORT INFORMATION
  Report Type: 
  Country: None (occurrence: None)
  Receive Date: 20081022
  Receipt Date: 20080606
  Transmission Date: 20090506
  Serious: Yes (Hospitalization)
  Sender: FDA-Public Use
  Company Number: CL000322008

PATIENT
  Age: 75 Year
  Sex: Female

DRUGS (3)
  1. CIPROFLOXACIN [Suspect]
     Indication: URINARY TRACT INFECTION
     Dosage: 500MG, ORAL
     Route: 048
  2. GAVISCON [Concomitant]
  3. SYMBICORT [Concomitant]

REACTIONS (1)
  - TENOSYNOVITIS [None]
